FAERS Safety Report 15532790 (Version 1)
Quarter: 2018Q4

REPORT INFORMATION
  Report Type: Spontaneous
  Country: ES (occurrence: ES)
  Receive Date: 20181019
  Receipt Date: 20181019
  Transmission Date: 20190205
  Serious: Yes (Hospitalization)
  Sender: FDA-Public Use
  Company Number: ES-ROCHE-2197208

PATIENT
  Age: 61 Year
  Sex: Female

DRUGS (15)
  1. CAPECITABINE. [Suspect]
     Active Substance: CAPECITABINE
     Indication: LARGE INTESTINE PERFORATION
  2. IRINOTECAN [Suspect]
     Active Substance: IRINOTECAN
     Indication: METASTASES TO LIVER
  3. OXALIPLATIN. [Suspect]
     Active Substance: OXALIPLATIN
     Indication: LARGE INTESTINE PERFORATION
     Dosage: UNK
     Route: 065
     Dates: start: 20170125, end: 20170125
  4. BEVACIZUMAB. [Suspect]
     Active Substance: BEVACIZUMAB
     Indication: METASTASES TO LIVER
     Dosage: UNK
     Route: 065
     Dates: start: 20160713, end: 20160713
  5. CAPECITABINE. [Suspect]
     Active Substance: CAPECITABINE
     Indication: METASTASES TO LIVER
     Route: 065
  6. ZALTRAP [Suspect]
     Active Substance: ZIV-AFLIBERCEPT
     Indication: LARGE INTESTINE PERFORATION
     Dosage: MOST RECENT DOSE: 25/APR/2018
     Route: 065
     Dates: start: 20170711
  7. ZALTRAP [Suspect]
     Active Substance: ZIV-AFLIBERCEPT
     Indication: METASTASES TO LIVER
  8. FLUOROURACIL. [Suspect]
     Active Substance: FLUOROURACIL
     Indication: METASTASES TO LIVER
     Dosage: MOST RECENT DOSE: 25/APR/2018
     Route: 065
     Dates: start: 20170711
  9. IRINOTECAN [Suspect]
     Active Substance: IRINOTECAN
     Indication: LARGE INTESTINE PERFORATION
     Dosage: MOST RECENT DOSE: 25/APR/2018
     Route: 065
     Dates: start: 20170711
  10. OXALIPLATIN. [Suspect]
     Active Substance: OXALIPLATIN
     Indication: METASTASES TO LIVER
     Dosage: UNK
     Route: 065
     Dates: start: 20160713, end: 20160713
  11. FLUOROURACIL. [Suspect]
     Active Substance: FLUOROURACIL
     Indication: LARGE INTESTINE PERFORATION
  12. BEVACIZUMAB. [Suspect]
     Active Substance: BEVACIZUMAB
     Indication: LARGE INTESTINE PERFORATION
  13. FOLINIC ACID [Suspect]
     Active Substance: LEUCOVORIN
     Indication: LARGE INTESTINE PERFORATION
     Dosage: MOST RECENT DOSE: 25/APR/2018
     Route: 065
     Dates: start: 20170711
  14. FOLINIC ACID [Suspect]
     Active Substance: LEUCOVORIN
     Indication: METASTASES TO LIVER
     Dosage: UNK
     Route: 065
     Dates: start: 20160713, end: 20160713
  15. OXALIPLATIN. [Suspect]
     Active Substance: OXALIPLATIN
     Dosage: UNK
     Route: 065
     Dates: start: 20141223, end: 20141223

REACTIONS (6)
  - Hypersensitivity [Unknown]
  - Metastases to liver [Unknown]
  - Neutropenia [Unknown]
  - Neurotoxicity [Unknown]
  - Metastatic neoplasm [Unknown]
  - Asthenia [Unknown]
